FAERS Safety Report 16366952 (Version 1)
Quarter: 2019Q2

REPORT INFORMATION
  Report Type: Spontaneous
  Country: US (occurrence: US)
  Receive Date: 20190529
  Receipt Date: 20190529
  Transmission Date: 20190711
  Serious: Yes (Other)
  Sender: FDA-Public Use
  Company Number: US-AKORN PHARMACEUTICALS-2019AKN01119

PATIENT
  Age: 24 Year
  Sex: Female

DRUGS (2)
  1. CLARAVIS [Suspect]
     Active Substance: ISOTRETINOIN
     Dosage: 30 MG, 2X/DAY (WITH 40 MG FOR 100 MG TOTAL DAILY DOSE)
     Dates: start: 20190209, end: 20190414
  2. MYORISAN [Suspect]
     Active Substance: ISOTRETINOIN
     Dosage: TAKEN WITH 30 MG FOR AVERAGE DAILY DOSE OF 100 MG
     Dates: start: 20181115, end: 20190414

REACTIONS (1)
  - Exposure during pregnancy [Not Recovered/Not Resolved]

NARRATIVE: CASE EVENT DATE: 20190319
